FAERS Safety Report 7366160-8 (Version None)
Quarter: 2011Q1

REPORT INFORMATION
  Report Type: 
  Country: None (occurrence: None)
  Receive Date: 20110310
  Receipt Date: 20110224
  Transmission Date: 20110831
  Serious: Yes (Other)
  Sender: FDA-Public Use
  Company Number: DSA_45131_2011

PATIENT
  Age: 6 Year
  Sex: Female

DRUGS (1)
  1. XENAZINE [Suspect]
     Indication: CHOREA
     Dosage: 12.5 MG OR 6.25 MG DAILY ORAL
     Route: 048

REACTIONS (4)
  - DEPRESSION [None]
  - DYSTONIA [None]
  - DRUG INEFFECTIVE [None]
  - CONDITION AGGRAVATED [None]
